FAERS Safety Report 15498974 (Version 1)
Quarter: 2018Q4

REPORT INFORMATION
  Report Type: Spontaneous
  Country: US (occurrence: US)
  Receive Date: 20181005
  Receipt Date: 20181005
  Transmission Date: 20190205
  Serious: No
  Sender: FDA-Public Use
  Company Number: None

PATIENT
  Age: 45 Year
  Sex: Female

DRUGS (1)
  1. REBIF [Suspect]
     Active Substance: INTERFERON BETA-1A
     Indication: MULTIPLE SCLEROSIS
     Dates: start: 20091004

REACTIONS (4)
  - Middle insomnia [None]
  - Pulmonary congestion [None]
  - Unevaluable event [None]
  - Infection [None]

NARRATIVE: CASE EVENT DATE: 20181004
